FAERS Safety Report 4951340-9 (Version None)
Quarter: 2006Q1

REPORT INFORMATION
  Report Type: 
  Country: None (occurrence: None)
  Receive Date: 20060317
  Receipt Date: 20060310
  Transmission Date: 20060701
  Serious: Yes (Life-Threatening, Other)
  Sender: FDA-Public Use
  Company Number: 200510833BFR

PATIENT
  Age: 52 Year
  Sex: Male

DRUGS (11)
  1. CIPROFLAXACIN [Suspect]
     Dosage: ORAL
     Route: 048
     Dates: start: 20050925, end: 20050930
  2. IMOVANE (ZOPICLONE) [Suspect]
     Dosage: SEE IMAGE
     Dates: end: 20050801
  3. IMOVANE (ZOPICLONE) [Suspect]
     Dosage: SEE IMAGE
     Dates: start: 20050922, end: 20051003
  4. LAMICTAL [Suspect]
     Indication: INTRACRANIAL INJURY
     Dosage: SEE IMAGE
     Route: 048
     Dates: start: 20050907, end: 20050901
  5. LAMICTAL [Suspect]
     Indication: INTRACRANIAL INJURY
     Dosage: SEE IMAGE
     Route: 048
     Dates: start: 20050901, end: 20050913
  6. LAMICTAL [Suspect]
     Indication: INTRACRANIAL INJURY
     Dosage: SEE IMAGE
     Route: 048
     Dates: start: 20050913, end: 20051013
  7. LAMICTAL [Suspect]
     Indication: INTRACRANIAL INJURY
     Dosage: SEE IMAGE
     Route: 048
     Dates: start: 20050901
  8. DEPAKENE [Suspect]
     Indication: INTRACRANIAL INJURY
     Dosage: 1000 MG, BID, ORAL
     Route: 048
     Dates: end: 20050911
  9. STABLON (TIANEPTINE) [Suspect]
     Dosage: 12.5 MG, ORAL
     Route: 048
  10. XENETIX (IOBITRIDOL) [Suspect]
     Indication: ABDOMEN SCAN
     Dosage: SEE IMAGE
     Dates: start: 20050920
  11. XENETIX (IOBITRIDOL) [Suspect]
     Indication: ABDOMEN SCAN
     Dosage: SEE IMAGE
     Dates: start: 20051003

REACTIONS (9)
  - CHILLS [None]
  - CONVULSION [None]
  - COUGH [None]
  - DRUG ERUPTION [None]
  - EOSINOPHILIA [None]
  - OEDEMA [None]
  - PRURITUS [None]
  - PYREXIA [None]
  - RASH MORBILLIFORM [None]
